FAERS Safety Report 14155966 (Version 3)
Quarter: 2018Q1

REPORT INFORMATION
  Report Type: Spontaneous
  Country: US (occurrence: US)
  Receive Date: 20171103
  Receipt Date: 20180323
  Transmission Date: 20180508
  Serious: Yes (Death, Life-Threatening, Hospitalization, Other)
  Sender: FDA-Public Use
  Company Number: US-PFIZER INC-2017475651

PATIENT
  Age: 85 Year
  Sex: Male
  Weight: 77 kg

DRUGS (24)
  1. METOPROLOL. [Concomitant]
     Active Substance: METOPROLOL
     Dosage: 75 MG, DAILY (1.5 TABS)
  2. INSULIN GLARGINE [Concomitant]
     Active Substance: INSULIN GLARGINE
     Dosage: 30 IU, DAILY
     Route: 058
  3. AMLODIPINE [Concomitant]
     Active Substance: AMLODIPINE BESYLATE
     Dosage: 5 MG, DAILY
  4. ONDANSETRON [Concomitant]
     Active Substance: ONDANSETRON
     Dosage: 4 MG, AS NEEDED (EVERY 12 HOURS, AS NEEDED)
  5. TRAMADOL. [Concomitant]
     Active Substance: TRAMADOL
     Dosage: 50 MG, AS NEEDED (EVERY 6 HOURS AS NEEDED)
     Route: 048
  6. IRON POLYSACCHARIDE [Concomitant]
     Dosage: 150 MG, DAILY
     Route: 048
  7. XALKORI [Suspect]
     Active Substance: CRIZOTINIB
     Indication: LUNG NEOPLASM MALIGNANT
     Dosage: 250 MG, TWICE DAILY
     Route: 048
     Dates: start: 20170920, end: 20170923
  8. XALKORI [Suspect]
     Active Substance: CRIZOTINIB
     Dosage: 250 MG, 1X/DAY
     Dates: start: 20171008
  9. LYRICA [Suspect]
     Active Substance: PREGABALIN
     Dosage: UNK
  10. INSULIN GLARGINE [Concomitant]
     Active Substance: INSULIN GLARGINE
     Dosage: 25 IU, DAILY
     Route: 058
  11. MEGACE [Concomitant]
     Active Substance: MEGESTROL ACETATE
     Dosage: 20 ML, DAILY (800 MG: 20 ML)
     Route: 048
  12. DUONEB [Concomitant]
     Active Substance: ALBUTEROL SULFATE\IPRATROPIUM BROMIDE
     Dosage: 0.5 MG-2.5 MG/3 ML INHALATION SOLUTION 3 ML, 4X.DAY
  13. ZOFRAN [Concomitant]
     Active Substance: ONDANSETRON HYDROCHLORIDE
     Dosage: 4 MG, AS NEEDED EVERY 12 HOURS)
     Route: 048
  14. ASCORBIC ACID. [Concomitant]
     Active Substance: ASCORBIC ACID
     Dosage: 500 MG, DAILY
     Route: 048
  15. PREDNISONE. [Concomitant]
     Active Substance: PREDNISONE
     Dosage: 20 MG, DAILY
     Route: 048
  16. ELIQUIS [Concomitant]
     Active Substance: APIXABAN
     Dosage: 5 MG, TWICE DAILY
     Route: 048
  17. MAGNESIUM OXIDE. [Concomitant]
     Active Substance: MAGNESIUM OXIDE
     Dosage: 400 MG, DAILY
     Route: 048
  18. NORVASC [Concomitant]
     Active Substance: AMLODIPINE BESYLATE
     Dosage: 5 MG, DAILY
     Route: 048
  19. TYLENOL [Concomitant]
     Active Substance: ACETAMINOPHEN
     Dosage: 500 MG, AS NEEDED
     Route: 048
  20. ASPIRIN. [Concomitant]
     Active Substance: ASPIRIN
     Dosage: 325 MG, DAILY
     Route: 048
  21. ENALAPRIL [Concomitant]
     Active Substance: ENALAPRIL
     Dosage: 20 MG, TWICE DAILY
     Route: 048
  22. GLIPIZIDE. [Concomitant]
     Active Substance: GLIPIZIDE
     Dosage: 7.5 MG, 2.5 MG X^S 3 TABS WITH BREAKFAST
     Route: 048
  23. HYDROCHLOROTHIAZIDE. [Concomitant]
     Active Substance: HYDROCHLOROTHIAZIDE
     Dosage: 12.5 MG (0.5 TAB), DAILY
     Route: 048
  24. AUGMENTIN [Concomitant]
     Active Substance: AMOXICILLIN\CLAVULANATE POTASSIUM
     Dosage: 125 MG, 2X/DAY(EVERY 12 HOURS)
     Route: 048

REACTIONS (30)
  - Wheezing [Unknown]
  - Dehydration [Unknown]
  - Thrombocytopenia [Unknown]
  - Vomiting [Recovered/Resolved]
  - Abdominal pain [Unknown]
  - Malnutrition [Unknown]
  - Gastrointestinal haemorrhage [Unknown]
  - Delirium [Recovered/Resolved]
  - Nausea [Recovered/Resolved]
  - Respiratory failure [Unknown]
  - Faeces discoloured [Recovered/Resolved]
  - Confusional state [Unknown]
  - Anxiety [Unknown]
  - Pneumonia [Fatal]
  - Diarrhoea [Recovered/Resolved]
  - Musculoskeletal pain [Unknown]
  - Depression [Unknown]
  - Decreased appetite [Unknown]
  - Upper limb fracture [Unknown]
  - Eye disorder [Unknown]
  - Neoplasm progression [Fatal]
  - Acute kidney injury [Unknown]
  - Renal disorder [Unknown]
  - Dyspnoea [Recovering/Resolving]
  - Hypoxia [Recovered/Resolved]
  - Neutrophilia [Unknown]
  - Asthenia [Unknown]
  - Gastritis [Recovered/Resolved]
  - Platelet count decreased [Unknown]
  - Diplopia [Recovered/Resolved]

NARRATIVE: CASE EVENT DATE: 20170920
